FAERS Safety Report 14579421 (Version 5)
Quarter: 2018Q2

REPORT INFORMATION
  Report Type: Report from Study
  Country: US (occurrence: US)
  Receive Date: 20180227
  Receipt Date: 20180608
  Transmission Date: 20180711
  Serious: Yes (Hospitalization)
  Sender: FDA-Public Use
  Company Number: US-ACTELION-A-NJ2017-156188

PATIENT
  Age: 59 Year
  Sex: Female
  Weight: 63.49 kg

DRUGS (6)
  1. ADEMPAS [Concomitant]
     Active Substance: RIOCIGUAT
  2. UPTRAVI [Suspect]
     Active Substance: SELEXIPAG
     Indication: PULMONARY ARTERIAL HYPERTENSION
     Dosage: 1600 MCG, BID
     Route: 048
  3. OPSUMIT [Suspect]
     Active Substance: MACITENTAN
     Indication: PULMONARY ARTERIAL HYPERTENSION
     Dosage: 10 MG, QD
     Route: 048
  4. COUMADIN [Concomitant]
     Active Substance: WARFARIN SODIUM
  5. ADCIRCA [Concomitant]
     Active Substance: TADALAFIL
  6. UPTRAVI [Suspect]
     Active Substance: SELEXIPAG
     Dosage: 1400 MCG, BID
     Route: 048

REACTIONS (22)
  - Haematocrit decreased [Unknown]
  - Musculoskeletal stiffness [Not Recovered/Not Resolved]
  - Paraesthesia [Unknown]
  - Loss of consciousness [Unknown]
  - Joint injury [Unknown]
  - Cystitis [Unknown]
  - Nausea [Unknown]
  - Weight increased [Unknown]
  - Dehydration [Unknown]
  - Condition aggravated [Unknown]
  - Headache [Unknown]
  - Hypotension [Unknown]
  - Dizziness [Recovering/Resolving]
  - Arthralgia [Unknown]
  - Pain in extremity [Not Recovered/Not Resolved]
  - Arthritis [Unknown]
  - Joint lock [Unknown]
  - Vomiting [Unknown]
  - Haemoglobin decreased [Unknown]
  - Muscular weakness [Unknown]
  - Anaemia [Unknown]
  - Syncope [Unknown]

NARRATIVE: CASE EVENT DATE: 20170718
